FAERS Safety Report 21163961 (Version 2)
Quarter: 2022Q3

REPORT INFORMATION
  Report Type: Report from Study
  Country: US (occurrence: US)
  Receive Date: 20220803
  Receipt Date: 20220928
  Transmission Date: 20221027
  Serious: Yes (Hospitalization, Other)
  Sender: FDA-Public Use
  Company Number: US-ABBVIE-22K-163-4442281-00

PATIENT
  Sex: Male
  Weight: 99.79 kg

DRUGS (2)
  1. HUMIRA [Suspect]
     Active Substance: ADALIMUMAB
     Indication: Psoriatic arthropathy
     Dosage: CITRATE FREE
     Route: 058
  2. HUMIRA [Suspect]
     Active Substance: ADALIMUMAB
     Indication: Rheumatoid arthritis

REACTIONS (6)
  - Seizure [Recovered/Resolved]
  - Muscle spasms [Unknown]
  - Neck surgery [Recovering/Resolving]
  - Tremor [Unknown]
  - Muscle spasms [Recovered/Resolved]
  - Cervical spinal stenosis [Unknown]

NARRATIVE: CASE EVENT DATE: 20220101
